FAERS Safety Report 15225843 (Version 1)
Quarter: 2018Q3

REPORT INFORMATION
  Report Type: Spontaneous
  Country: US (occurrence: US)
  Receive Date: 20180801
  Receipt Date: 20180801
  Transmission Date: 20181010
  Serious: No
  Sender: FDA-Public Use
  Company Number: US-PFIZER INC-2018307562

PATIENT
  Age: 43 Year
  Sex: Male

DRUGS (1)
  1. EMBEDA [Suspect]
     Active Substance: MORPHINE SULFATE\NALTREXONE HYDROCHLORIDE
     Dosage: UNK (REPORTED AS 60?2.4 MG AND 30?1.2 MG)

REACTIONS (1)
  - Abdominal discomfort [Unknown]
